FAERS Safety Report 4750418-2 (Version None)
Quarter: 2005Q3

REPORT INFORMATION
  Report Type: 
  Country: None (occurrence: None)
  Receive Date: 20050819
  Receipt Date: 20050808
  Transmission Date: 20060218
  Serious: Yes (Death, Other)
  Sender: FDA-Public Use
  Company Number: WAES 0508USA01322

PATIENT
  Sex: Male

DRUGS (1)
  1. INDOCIN I.V. [Suspect]
     Indication: PROPHYLAXIS
     Dosage: 0.1 MG/KG/ DAILY
     Route: 042

REACTIONS (4)
  - ATRIOVENTRICULAR BLOCK [None]
  - HYPERKALAEMIA [None]
  - NEONATAL CARDIAC FAILURE [None]
  - NEONATAL DISORDER [None]
